FAERS Safety Report 24942778 (Version 2)
Quarter: 2025Q3

REPORT INFORMATION
  Report Type: Spontaneous
  Country: US (occurrence: US)
  Receive Date: 20250207
  Receipt Date: 20250721
  Transmission Date: 20251021
  Serious: No
  Sender: SANOFI AVENTIS
  Company Number: US-SA-2025SA037044

PATIENT
  Age: 56 Year
  Sex: Male

DRUGS (2)
  1. DUPIXENT [Suspect]
     Active Substance: DUPILUMAB
     Indication: Dermatitis atopic
     Route: 058
     Dates: start: 20250109, end: 20250109
  2. DUPIXENT [Suspect]
     Active Substance: DUPILUMAB
     Dosage: 300 MG, QOW
     Route: 058
     Dates: start: 20250123

REACTIONS (6)
  - Pain in extremity [Unknown]
  - Pruritus [Unknown]
  - Toothache [Recovered/Resolved]
  - Headache [Unknown]
  - Arthralgia [Unknown]
  - Injection site pain [Unknown]

NARRATIVE: CASE EVENT DATE: 20250101
